FAERS Safety Report 10276882 (Version 1)
Quarter: 2014Q3

REPORT INFORMATION
  Report Type: Spontaneous
  Country: US (occurrence: US)
  Receive Date: 20140703
  Receipt Date: 20140703
  Transmission Date: 20150326
  Serious: Yes (Other)
  Sender: FDA-Public Use
  Company Number: US-ASTRAZENECA-2014SE47083

PATIENT
  Age: 59 Year
  Sex: Female
  Weight: 77.1 kg

DRUGS (15)
  1. PREDNISONE. [Suspect]
     Active Substance: PREDNISONE
  2. SEROQUEL XR [Suspect]
     Active Substance: QUETIAPINE FUMARATE
     Indication: SLEEP DISORDER
     Route: 048
     Dates: end: 20140419
  3. LIDOCAINE PATCH [Suspect]
     Active Substance: LIDOCAINE
     Indication: PAIN
     Route: 061
     Dates: start: 20140420
  4. TRAMADOL [Suspect]
     Active Substance: TRAMADOL
  5. VITAMIN D [Concomitant]
     Active Substance: CHOLECALCIFEROL
     Indication: VITAMIN D DEFICIENCY
     Route: 048
     Dates: start: 20140421, end: 20140519
  6. CLONAZEPAM. [Concomitant]
     Active Substance: CLONAZEPAM
     Indication: ANXIETY
     Dosage: 1MG DAILY IN AM, 0.5MG DAILY IN MID MORNING, 0.5MG DAILY AT 3 OR 4 PM
     Route: 048
  7. SEROQUEL XR [Suspect]
     Active Substance: QUETIAPINE FUMARATE
     Indication: SLEEP DISORDER
     Route: 048
     Dates: start: 2010
  8. VITAMIN B FOLBIC [Concomitant]
     Indication: VITAMIN B COMPLEX DEFICIENCY
     Dosage: UNKNOWN HS
     Route: 048
     Dates: start: 20140527
  9. FLEXERIL [Concomitant]
     Active Substance: CYCLOBENZAPRINE HYDROCHLORIDE
  10. SEROQUEL XR [Suspect]
     Active Substance: QUETIAPINE FUMARATE
     Indication: SLEEP DISORDER
     Route: 048
  11. SEROQUEL XR [Suspect]
     Active Substance: QUETIAPINE FUMARATE
     Indication: SLEEP DISORDER
     Route: 048
  12. CLONAZEPAM. [Concomitant]
     Active Substance: CLONAZEPAM
     Indication: DEPRESSION
     Dosage: 1MG DAILY IN AM, 0.5MG DAILY IN MID MORNING, 0.5MG DAILY AT 3 OR 4 PM
     Route: 048
  13. HYDROCODONE [Suspect]
     Active Substance: HYDROCODONE
  14. VITAMIN D [Concomitant]
     Active Substance: CHOLECALCIFEROL
     Indication: VITAMIN D DEFICIENCY
     Route: 048
     Dates: start: 20140519
  15. ALEVE [Concomitant]
     Active Substance: NAPROXEN SODIUM
     Indication: PAIN
     Route: 048
     Dates: start: 20140420

REACTIONS (20)
  - Myalgia [Not Recovered/Not Resolved]
  - Paraesthesia [Not Recovered/Not Resolved]
  - Insomnia [Not Recovered/Not Resolved]
  - Cerebrovascular accident [Not Recovered/Not Resolved]
  - Nausea [Not Recovered/Not Resolved]
  - Irritability [Not Recovered/Not Resolved]
  - Weight increased [Recovered/Resolved]
  - Headache [Not Recovered/Not Resolved]
  - Flushing [Recovered/Resolved]
  - Hypoaesthesia [Unknown]
  - Off label use [Recovered/Resolved]
  - Intentional product misuse [Recovered/Resolved]
  - Hallucination, visual [Recovered/Resolved]
  - Formication [Recovered/Resolved]
  - Chest pain [Unknown]
  - Oropharyngeal pain [Not Recovered/Not Resolved]
  - False positive investigation result [Recovered/Resolved]
  - Protein total abnormal [Recovered/Resolved]
  - Vitamin D deficiency [Not Recovered/Not Resolved]
  - Vitamin B complex deficiency [Not Recovered/Not Resolved]

NARRATIVE: CASE EVENT DATE: 2010
